FAERS Safety Report 15740811 (Version 1)
Quarter: 2018Q4

REPORT INFORMATION
  Report Type: Report from Study
  Country: ZA (occurrence: ZA)
  Receive Date: 20181219
  Receipt Date: 20181219
  Transmission Date: 20190205
  Serious: Yes (Other)
  Sender: FDA-Public Use
  Company Number: ZA-MYLANLABS-2018M1094200

PATIENT
  Sex: Female

DRUGS (11)
  1. FORTUM                             /00559701/ [Concomitant]
     Active Substance: CEFTAZIDIME
     Dosage: UNK
     Route: 065
     Dates: start: 20160111
  2. TOBI [Suspect]
     Active Substance: TOBRAMYCIN
     Dosage: 300 MILLIGRAM, BID
     Route: 055
  3. FORTUM                             /00559701/ [Concomitant]
     Active Substance: CEFTAZIDIME
     Dosage: UNK
     Route: 065
     Dates: start: 20150827
  4. FORTUM                             /00559701/ [Concomitant]
     Active Substance: CEFTAZIDIME
     Dosage: UNK
     Route: 065
     Dates: start: 20160208
  5. TOBI [Suspect]
     Active Substance: TOBRAMYCIN
     Dosage: UNK
     Route: 065
     Dates: start: 20160630
  6. AMIKACIN. [Suspect]
     Active Substance: AMIKACIN
     Indication: PRODUCT USED FOR UNKNOWN INDICATION
     Dosage: UNK
     Route: 055
  7. FORTUM                             /00559701/ [Concomitant]
     Active Substance: CEFTAZIDIME
     Dosage: UNK
     Route: 065
     Dates: start: 20150922
  8. FORTUM                             /00559701/ [Concomitant]
     Active Substance: CEFTAZIDIME
     Dosage: UNK
     Route: 065
     Dates: start: 20151217
  9. TOBI [Suspect]
     Active Substance: TOBRAMYCIN
     Indication: CYSTIC FIBROSIS
     Dosage: 300 MG, BID (3 MONTHS)
     Route: 065
  10. FORTUM                             /00559701/ [Concomitant]
     Active Substance: CEFTAZIDIME
     Indication: PRODUCT USED FOR UNKNOWN INDICATION
     Dosage: UNK
     Route: 065
     Dates: start: 20150803
  11. TOBI [Suspect]
     Active Substance: TOBRAMYCIN
     Dosage: UNK
     Route: 065
     Dates: start: 20160725

REACTIONS (8)
  - Lower respiratory tract inflammation [Unknown]
  - Burkholderia cepacia complex infection [Unknown]
  - Bronchiectasis [Unknown]
  - Syncope [Unknown]
  - Candida infection [Unknown]
  - Bronchospasm [Unknown]
  - Dysphonia [Unknown]
  - Pseudomonas infection [Unknown]
